FAERS Safety Report 7688884-5 (Version None)
Quarter: 2011Q3

REPORT INFORMATION
  Report Type: 
  Country: None (occurrence: None)
  Receive Date: 20110817
  Receipt Date: 20110805
  Transmission Date: 20111222
  Serious: Yes (Hospitalization, Other)
  Sender: FDA-Public Use
  Company Number: PHHY2011BR71153

PATIENT
  Sex: Female

DRUGS (2)
  1. EXELON [Suspect]
     Dosage: 4.6 MG, 1 PATCH PER DAY
     Route: 062
  2. EXELON [Suspect]
     Indication: DEMENTIA ALZHEIMER'S TYPE
     Dosage: 1 DF, BID
     Route: 048

REACTIONS (7)
  - SPEECH DISORDER [None]
  - CYANOSIS [None]
  - HERPES VIRUS INFECTION [None]
  - APHASIA [None]
  - CHOKING [None]
  - BLOOD PRESSURE FLUCTUATION [None]
  - PNEUMONIA ASPIRATION [None]
